FAERS Safety Report 7337471-7 (Version None)
Quarter: 2011Q1

REPORT INFORMATION
  Report Type: 
  Country: None (occurrence: None)
  Receive Date: 20110224
  Receipt Date: 20110216
  Transmission Date: 20110831
  Serious: Yes (Hospitalization)
  Sender: FDA-Public Use
  Company Number: 2010SP047114

PATIENT
  Age: 34 Year
  Sex: Female
  Weight: 127.0072 kg

DRUGS (2)
  1. NUVARING [Suspect]
     Indication: MENORRHAGIA
     Dates: start: 20081001, end: 20090201
  2. NUVARING [Suspect]
     Indication: CONTRACEPTION
     Dates: start: 20081001, end: 20090201

REACTIONS (14)
  - MULTIPLE INJURIES [None]
  - DYSPNOEA [None]
  - PULMONARY INFARCTION [None]
  - PULMONARY EMBOLISM [None]
  - NASAL CONGESTION [None]
  - ANXIETY [None]
  - PAIN IN EXTREMITY [None]
  - DEPRESSION [None]
  - CHEST PAIN [None]
  - BRONCHITIS [None]
  - DEEP VEIN THROMBOSIS [None]
  - UPPER RESPIRATORY TRACT INFECTION [None]
  - VAGINAL HAEMORRHAGE [None]
  - CARDIOMEGALY [None]
